FAERS Safety Report 9430134 (Version 1)
Quarter: 2013Q3

REPORT INFORMATION
  Report Type: Spontaneous
  Country: ES (occurrence: None)
  Receive Date: 20130726
  Receipt Date: 20130726
  Transmission Date: 20140515
  Serious: Yes (Hospitalization)
  Sender: FDA-Public Use
  Company Number: ES-012381

PATIENT
  Age: 46 Year
  Sex: Male

DRUGS (2)
  1. DESMOPRESSIN [Suspect]
     Indication: DIABETES INSIPIDUS
     Dosage: 5UG BID NASAL
     Route: 045
  2. ACECLOFENAC [Suspect]
     Indication: BACK PAIN

REACTIONS (3)
  - Hyponatraemia [None]
  - Blood creatine phosphokinase increased [None]
  - Potentiating drug interaction [None]
